FAERS Safety Report 18484417 (Version 2)
Quarter: 2020Q4

REPORT INFORMATION
  Report Type: Spontaneous
  Country: US (occurrence: US)
  Receive Date: 20201109
  Receipt Date: 20201117
  Transmission Date: 20210114
  Serious: No
  Sender: FDA-Public Use
  Company Number: US-ABBVIE-20K-163-3631014-00

PATIENT
  Sex: Male
  Weight: 90.35 kg

DRUGS (1)
  1. ANDROGEL [Suspect]
     Active Substance: TESTOSTERONE
     Indication: ANDROGEN REPLACEMENT THERAPY
     Dosage: 3 PUMPS IN THE MORNING AND 3 PUMPS AT NIGHT
     Route: 061

REACTIONS (3)
  - Aggression [Unknown]
  - Drug hypersensitivity [Unknown]
  - Testicular swelling [Unknown]
